FAERS Safety Report 8380576-2 (Version None)
Quarter: 2012Q2

REPORT INFORMATION
  Report Type: 
  Country: None (occurrence: None)
  Receive Date: 20120523
  Receipt Date: 20120523
  Transmission Date: 20120825
  Serious: Yes (Life-Threatening)
  Sender: FDA-Public Use
  Company Number: FR-BAYER-2012-050669

PATIENT
  Age: 59 Year
  Sex: Female

DRUGS (1)
  1. ULTRAVIST 150 [Suspect]
     Indication: POSITRON EMISSION TOMOGRAM
     Dosage: 80 ML, ONCE
     Route: 042
     Dates: start: 20120427, end: 20120427

REACTIONS (2)
  - COMA [None]
  - ANAPHYLACTIC SHOCK [None]
